FAERS Safety Report 11621855 (Version 2)
Quarter: 2015Q4

REPORT INFORMATION
  Report Type: Spontaneous
  Country: JP (occurrence: JP)
  Receive Date: 20151013
  Receipt Date: 20151130
  Transmission Date: 20160304
  Serious: Yes (Hospitalization, Other)
  Sender: FDA-Public Use
  Company Number: JP-009507513-1509JPN009227

PATIENT
  Age: 89 Year
  Sex: Male

DRUGS (3)
  1. MENESIT TABLETS - 100 [Suspect]
     Active Substance: CARBIDOPA\LEVODOPA
     Indication: PARKINSON^S DISEASE
     Dosage: DAILY DOSAGE UNKNOWN
     Route: 048
     Dates: end: 201509
  2. MENESIT TABLETS - 100 [Suspect]
     Active Substance: CARBIDOPA\LEVODOPA
     Dosage: DAILY DOSAGE UNKNOWN
     Route: 048
     Dates: start: 201509, end: 201509
  3. NEUPRO [Concomitant]
     Active Substance: ROTIGOTINE
     Dosage: DAILY DOSAGE UNKNOWN
     Route: 062
     Dates: end: 201509

REACTIONS (3)
  - Platelet count decreased [Recovered/Resolved]
  - Anaemia [Recovered/Resolved]
  - Adverse event [Unknown]

NARRATIVE: CASE EVENT DATE: 20150918
